FAERS Safety Report 7621984-4 (Version None)
Quarter: 2011Q3

REPORT INFORMATION
  Report Type: 
  Country: None (occurrence: None)
  Receive Date: 20110720
  Receipt Date: 20110713
  Transmission Date: 20111222
  Serious: Yes (Other)
  Sender: FDA-Public Use
  Company Number: MX-BRISTOL-MYERS SQUIBB COMPANY-15899586

PATIENT
  Age: 42 Year
  Sex: Female

DRUGS (4)
  1. METHOTREXATE [Suspect]
     Dates: start: 20080830
  2. DEFLAZACORT [Concomitant]
     Dates: start: 20080201
  3. ABATACEPT [Suspect]
     Indication: RHEUMATOID ARTHRITIS
     Dosage: 1 DF= 125 MG/DL
     Route: 058
     Dates: start: 20080709, end: 20110629
  4. FOLIC ACID [Concomitant]
     Dates: start: 20080201

REACTIONS (1)
  - POLYNEUROPATHY [None]
